FAERS Safety Report 18547644 (Version 1)
Quarter: 2020Q4

REPORT INFORMATION
  Report Type: Spontaneous
  Country: US (occurrence: US)
  Receive Date: 20201125
  Receipt Date: 20201125
  Transmission Date: 20210114
  Serious: No
  Sender: FDA-Public Use
  Company Number: US-ALKERMES INC.-ALK-2020-005254

PATIENT
  Age: 31 Year
  Sex: Male

DRUGS (1)
  1. VIVITROL [Suspect]
     Active Substance: NALTREXONE
     Indication: ALCOHOLISM
     Dosage: 380 MILLIGRAM, Q28D
     Route: 058
     Dates: start: 20190308

REACTIONS (2)
  - Depression [Not Recovered/Not Resolved]
  - Incorrect route of product administration [Recovered/Resolved]

NARRATIVE: CASE EVENT DATE: 20201109
